FAERS Safety Report 12171817 (Version 1)
Quarter: 2016Q1

REPORT INFORMATION
  Report Type: Spontaneous
  Country: US (occurrence: None)
  Receive Date: 20160310
  Receipt Date: 20160310
  Transmission Date: 20160526
  Serious: Yes (Hospitalization)
  Sender: FDA-Public Use
  Company Number: None

PATIENT
  Age: 81 Year
  Sex: Male

DRUGS (2)
  1. LANTUS [Concomitant]
     Active Substance: INSULIN GLARGINE
  2. RIVASTIGMINE 6 MG BRECKENRIDGE [Suspect]
     Active Substance: RIVASTIGMINE
     Route: 048

REACTIONS (5)
  - Feeling hot [None]
  - Abasia [None]
  - Loss of consciousness [None]
  - Diarrhoea [None]
  - Hyperhidrosis [None]
